FAERS Safety Report 5968727-8 (Version None)
Quarter: 2008Q4

REPORT INFORMATION
  Report Type: 
  Country: None (occurrence: None)
  Receive Date: 20081126
  Receipt Date: 20081124
  Transmission Date: 20090506
  Serious: Yes (Other)
  Sender: FDA-Public Use
  Company Number: B0547412A

PATIENT
  Age: 20 Year
  Sex: Male

DRUGS (1)
  1. VENTOLIN [Suspect]
     Dosage: 100MCG AS REQUIRED
     Route: 055

REACTIONS (3)
  - ASTHMA [None]
  - HYPERSENSITIVITY [None]
  - WHEEZING [None]
